FAERS Safety Report 13526550 (Version 1)
Quarter: 2017Q2

REPORT INFORMATION
  Report Type: Spontaneous
  Country: US (occurrence: US)
  Receive Date: 20170508
  Receipt Date: 20170508
  Transmission Date: 20170830
  Serious: Yes (Hospitalization)
  Sender: FDA-Public Use
  Company Number: None

PATIENT
  Age: 59 Year
  Sex: Male

DRUGS (14)
  1. LONSURF [Suspect]
     Active Substance: TIPIRACIL HYDROCHLORIDE\TRIFLURIDINE
     Indication: COLON CANCER
     Route: 048
     Dates: start: 20170215
  2. VITAMIN D [Concomitant]
     Active Substance: CHOLECALCIFEROL
  3. REGLAN [Concomitant]
     Active Substance: METOCLOPRAMIDE HYDROCHLORIDE
  4. PROCHLORPER [Concomitant]
  5. FERROUS SULF [Concomitant]
  6. BUMETANIDE. [Concomitant]
     Active Substance: BUMETANIDE
  7. LONSURF [Suspect]
     Active Substance: TIPIRACIL HYDROCHLORIDE\TRIFLURIDINE
     Indication: COLON CANCER
     Route: 048
     Dates: start: 20170215
  8. ONDANSETRON [Concomitant]
     Active Substance: ONDANSETRON
  9. DILAUDID [Concomitant]
     Active Substance: HYDROMORPHONE HYDROCHLORIDE
  10. K-TAB [Concomitant]
     Active Substance: POTASSIUM CHLORIDE
  11. FLOMAX [Concomitant]
     Active Substance: TAMSULOSIN HYDROCHLORIDE
  12. MULTI-VITAMIN [Concomitant]
     Active Substance: .ALPHA.-TOCOPHEROL ACETATE, DL-\ASCORBIC ACID\CYANOCOBALAMIN\FLUORIDE ION\FOLIC ACID\NIACIN\PYRIDOXINE\RIBOFLAVIN\THIAMINE\VITAMIN A\VITAMIN D
  13. FENTANYL. [Concomitant]
     Active Substance: FENTANYL
  14. AVODART [Concomitant]
     Active Substance: DUTASTERIDE

REACTIONS (4)
  - Nausea [None]
  - Infection [None]
  - Fatigue [None]
  - White blood cell count decreased [None]
